FAERS Safety Report 5239368-5 (Version None)
Quarter: 2007Q1

REPORT INFORMATION
  Report Type: 
  Country: None (occurrence: None)
  Receive Date: 20070216
  Receipt Date: 20070206
  Transmission Date: 20070707
  Serious: Yes (Hospitalization)
  Sender: FDA-Public Use
  Company Number: PHBS2007BE01983

PATIENT
  Age: 34 Year
  Sex: Male

DRUGS (1)
  1. NEORAL [Suspect]
     Indication: DERMATITIS ATOPIC
     Dosage: 2.5 MG/KG/D
     Route: 048
     Dates: start: 20061201

REACTIONS (4)
  - ARTHRITIS [None]
  - MUSCLE SPASMS [None]
  - OEDEMA [None]
  - SARCOIDOSIS [None]
